FAERS Safety Report 8500967-6 (Version None)
Quarter: 2012Q2

REPORT INFORMATION
  Report Type: 
  Country: None (occurrence: None)
  Receive Date: 20120405
  Receipt Date: 20100208
  Transmission Date: 20120825
  Serious: Yes (Hospitalization, Disabling)
  Sender: FDA-Public Use
  Company Number: PHEH2010US01650

PATIENT
  Age: 58 Year
  Sex: Female
  Weight: 47.2 kg

DRUGS (1)
  1. RECLAST [Suspect]
     Indication: OSTEOPOROSIS
     Dosage: 5 MG, INTRAVENOUS
     Route: 042
     Dates: start: 20100117, end: 20100117

REACTIONS (6)
  - PYREXIA [None]
  - ARTHRALGIA [None]
  - MYALGIA [None]
  - HEADACHE [None]
  - CHILLS [None]
  - PAIN [None]
